FAERS Safety Report 5704788-9 (Version None)
Quarter: 2008Q2

REPORT INFORMATION
  Report Type: 
  Country: None (occurrence: None)
  Receive Date: 20080414
  Receipt Date: 20080402
  Transmission Date: 20081010
  Serious: Yes (Other)
  Sender: FDA-Public Use
  Company Number: US-PFIZER INC-2008017358

PATIENT
  Sex: Male
  Weight: 118.18 kg

DRUGS (3)
  1. CHANTIX [Suspect]
     Indication: SMOKING CESSATION THERAPY
     Route: 048
     Dates: start: 20080101, end: 20080201
  2. TRICOR [Concomitant]
     Route: 048
  3. PLAVIX [Concomitant]
     Route: 048

REACTIONS (4)
  - HAEMORRHAGE [None]
  - HYPERSENSITIVITY [None]
  - SWELLING [None]
  - THINKING ABNORMAL [None]
